FAERS Safety Report 9167354 (Version 1)
Quarter: 2013Q1

REPORT INFORMATION
  Report Type: Spontaneous
  Country: US (occurrence: None)
  Receive Date: 20130314
  Receipt Date: 20130314
  Transmission Date: 20140127
  Serious: Yes (Hospitalization)
  Sender: FDA-Public Use
  Company Number: None

PATIENT
  Sex: Female
  Weight: 65.7 kg

DRUGS (1)
  1. INTRON A [Suspect]

REACTIONS (7)
  - White blood cell count decreased [None]
  - Neutrophil count decreased [None]
  - Insomnia [None]
  - Decreased appetite [None]
  - Dysgeusia [None]
  - Fatigue [None]
  - Headache [None]
